FAERS Safety Report 9492154 (Version 1)
Quarter: 2013Q3

REPORT INFORMATION
  Report Type: Spontaneous
  Country: GB (occurrence: None)
  Receive Date: 20130830
  Receipt Date: 20130830
  Transmission Date: 20140515
  Serious: Yes (Death, Hospitalization)
  Sender: FDA-Public Use
  Company Number: None

PATIENT
  Sex: Female

DRUGS (2)
  1. MIFEPRISTONE [Suspect]
     Indication: ABORTION
     Dosage: MIFEPRISTONE 200 MG PO
     Route: 048
  2. MISOPROSTOL [Suspect]
     Dosage: MISORPOSTOL  800 MCG, VAGINALLY?                    400 MCG
     Route: 067

REACTIONS (5)
  - Abdominal pain [None]
  - Vaginal haemorrhage [None]
  - Disseminated intravascular coagulation [None]
  - Cardiac arrest [None]
  - Clostridium difficile sepsis [None]
